FAERS Safety Report 10909280 (Version 1)
Quarter: 2015Q1

REPORT INFORMATION
  Report Type: Spontaneous
  Country: US (occurrence: US)
  Receive Date: 20150312
  Receipt Date: 20150312
  Transmission Date: 20150721
  Serious: No
  Sender: FDA-Public Use
  Company Number: US-SA-2014SA038571

PATIENT
  Age: 71 Year
  Sex: Female

DRUGS (2)
  1. NASACORT ALLERGY 24HR [Suspect]
     Active Substance: TRIAMCINOLONE ACETONIDE
     Indication: BRONCHITIS
     Dosage: 2 SPRAYS
     Route: 065
  2. PREDNISONE. [Concomitant]
     Active Substance: PREDNISONE

REACTIONS (4)
  - Bronchitis [Unknown]
  - Ear swelling [Unknown]
  - Dizziness [Unknown]
  - Drug dose omission [Unknown]
